FAERS Safety Report 10421981 (Version 1)
Quarter: 2014Q3

REPORT INFORMATION
  Report Type: Spontaneous
  Country: FR (occurrence: FR)
  Receive Date: 20140901
  Receipt Date: 20140901
  Transmission Date: 20150326
  Serious: Yes (Hospitalization)
  Sender: FDA-Public Use
  Company Number: FR-ROCHE-1455383

PATIENT
  Age: 57 Year
  Sex: Female

DRUGS (2)
  1. OXALIPLATINO TEVA [Suspect]
     Active Substance: OXALIPLATIN
     Indication: PRODUCT USED FOR UNKNOWN INDICATION
     Route: 042
     Dates: start: 20140709, end: 20140729
  2. XELODA [Suspect]
     Active Substance: CAPECITABINE
     Indication: ADENOCARCINOMA OF COLON
     Dosage: TWO WEEKS ON THREE
     Route: 048
     Dates: start: 20140709, end: 20140807

REACTIONS (6)
  - Diarrhoea [Unknown]
  - Lipase increased [Recovering/Resolving]
  - Prothrombin level decreased [Recovering/Resolving]
  - Amylase increased [Unknown]
  - Metabolic acidosis [Recovering/Resolving]
  - Renal failure acute [Recovering/Resolving]

NARRATIVE: CASE EVENT DATE: 20140805
